FAERS Safety Report 12600130 (Version 2)
Quarter: 2016Q3

REPORT INFORMATION
  Report Type: Spontaneous
  Country: ES (occurrence: ES)
  Receive Date: 20160727
  Receipt Date: 20160818
  Transmission Date: 20161109
  Serious: Yes (Other)
  Sender: FDA-Public Use
  Company Number: ES-PFIZER INC-2016356567

PATIENT
  Age: 49 Year
  Sex: Male

DRUGS (6)
  1. GABAPENTIN. [Suspect]
     Active Substance: GABAPENTIN
     Indication: BACK PAIN
     Dosage: 600 MG, 3X/DAY (EVERY 8 HOURS)
  2. PAROXETINE. [Concomitant]
     Active Substance: PAROXETINE
     Dosage: UNK
  3. DISULFIRAM. [Concomitant]
     Active Substance: DISULFIRAM
     Dosage: UNK
  4. EPROSARTAN [Concomitant]
     Active Substance: EPROSARTAN
     Indication: HYPOTENSION
     Dosage: UNK
  5. BISOPROLOL [Concomitant]
     Active Substance: BISOPROLOL
     Indication: HYPOTENSION
     Dosage: UNK
  6. MIANSERIN [Concomitant]
     Active Substance: MIANSERIN
     Dosage: UNK

REACTIONS (5)
  - Encephalopathy [Recovering/Resolving]
  - Toxicity to various agents [Recovering/Resolving]
  - Acute kidney injury [Recovered/Resolved]
  - Intentional product use issue [Recovering/Resolving]
  - Rhabdomyolysis [Recovering/Resolving]
